FAERS Safety Report 13393101 (Version 4)
Quarter: 2017Q2

REPORT INFORMATION
  Report Type: Spontaneous
  Country: SE (occurrence: SE)
  Receive Date: 20170331
  Receipt Date: 20170503
  Transmission Date: 20170830
  Serious: Yes (Other)
  Sender: FDA-Public Use
  Company Number: SE-TELIGENT, INC-IGIL20170128

PATIENT
  Age: 63 Year
  Sex: Female

DRUGS (6)
  1. LIDOCAINE HYDROCHLORIDE. [Concomitant]
     Active Substance: LIDOCAINE HYDROCHLORIDE
     Indication: CATARACT OPERATION
     Route: 065
  2. TROPICAMIDE. [Concomitant]
     Active Substance: TROPICAMIDE
     Indication: CATARACT OPERATION
     Route: 065
  3. ZINACEF [Suspect]
     Active Substance: CEFUROXIME SODIUM
     Indication: CATARACT OPERATION
     Route: 065
     Dates: start: 20170228, end: 20170228
  4. TETRACAINE. [Concomitant]
     Active Substance: TETRACAINE
     Indication: CATARACT OPERATION
     Route: 065
  5. PHENYLEPHRINE [Concomitant]
     Active Substance: PHENYLEPHRINE\PHENYLEPHRINE HYDROCHLORIDE
     Indication: CATARACT OPERATION
     Route: 065
  6. CYCLOPENTOLATE HYDROCHLORIDE. [Concomitant]
     Active Substance: CYCLOPENTOLATE HYDROCHLORIDE
     Indication: CATARACT OPERATION
     Route: 065

REACTIONS (8)
  - Haematuria [Recovered/Resolved]
  - Chromaturia [Recovered/Resolved]
  - Bladder pain [Recovered/Resolved]
  - Azotaemia [Recovered/Resolved]
  - Dysuria [Recovered/Resolved]
  - Fatigue [Recovered/Resolved]
  - Injury [Recovered/Resolved]
  - Urine odour abnormal [Recovered/Resolved]

NARRATIVE: CASE EVENT DATE: 20170228
